FAERS Safety Report 8041532 (Version 2)
Quarter: 2014Q3

REPORT INFORMATION
  Report Type: Spontaneous
  Country: CN (occurrence: CN)
  Receive Date: 20110718
  Receipt Date: 20140716
  Transmission Date: 20150326
  Serious: Yes (Hospitalization)
  Sender: FDA-Public Use
  Company Number: PHHY2011CN61538

PATIENT
  Age: 14 Year
  Sex: Female

DRUGS (1)
  1. CARBAMAZEPINE. [Suspect]
     Active Substance: CARBAMAZEPINE
     Indication: EPILEPSY
     Dosage: 0.2 G, BID
     Dates: start: 20100730

REACTIONS (26)
  - Rash [Recovering/Resolving]
  - Coma [Recovering/Resolving]
  - Breath sounds abnormal [Recovering/Resolving]
  - Pleural effusion [Recovering/Resolving]
  - Pneumonia [Recovering/Resolving]
  - Hepatic enzyme increased [Recovering/Resolving]
  - Acute hepatic failure [Recovering/Resolving]
  - Alanine aminotransferase increased [Recovering/Resolving]
  - Skin exfoliation [Recovering/Resolving]
  - Drug hypersensitivity [Recovering/Resolving]
  - Ammonia increased [Recovering/Resolving]
  - Loss of consciousness [Recovering/Resolving]
  - Pupillary reflex impaired [Recovering/Resolving]
  - Pruritus [Recovering/Resolving]
  - Hepatic encephalopathy [Recovering/Resolving]
  - Epilepsy [Recovering/Resolving]
  - Limb discomfort [Recovering/Resolving]
  - Hyporeflexia [Recovering/Resolving]
  - Extensor plantar response [Recovering/Resolving]
  - Respiratory failure [Recovering/Resolving]
  - Yellow skin [Recovering/Resolving]
  - Pyrexia [Recovering/Resolving]
  - Blood bilirubin increased [Recovering/Resolving]
  - Respiratory tract infection [Recovering/Resolving]
  - Stevens-Johnson syndrome [Recovering/Resolving]
  - Aspartate aminotransferase increased [Recovering/Resolving]

NARRATIVE: CASE EVENT DATE: 20100902
